FAERS Safety Report 14240158 (Version 1)
Quarter: 2017Q4

REPORT INFORMATION
  Report Type: Spontaneous
  Country: US (occurrence: US)
  Receive Date: 20171129
  Receipt Date: 20171129
  Transmission Date: 20180321
  Serious: Yes (Other)
  Sender: FDA-Public Use
  Company Number: None

PATIENT
  Sex: Female
  Weight: 73 kg

DRUGS (1)
  1. DOTAREM [Suspect]
     Active Substance: GADOTERATE MEGLUMINE
     Dates: start: 20171128, end: 20171128

REACTIONS (3)
  - Panic attack [None]
  - Palpitations [None]
  - Paraesthesia [None]

NARRATIVE: CASE EVENT DATE: 20171128
